FAERS Safety Report 24936149 (Version 1)
Quarter: 2025Q1

REPORT INFORMATION
  Report Type: Spontaneous
  Country: NL (occurrence: NL)
  Receive Date: 20250206
  Receipt Date: 20250206
  Transmission Date: 20250408
  Serious: Yes (Life-Threatening, Disabling, Other)
  Sender: ACCORD
  Company Number: None

PATIENT
  Age: 19 Year
  Sex: Male
  Weight: 62 kg

DRUGS (9)
  1. BUPROPION HYDROCHLORIDE [Suspect]
     Active Substance: BUPROPION HYDROCHLORIDE
     Indication: Anhedonia
     Dosage: STRENGTH: 150MG, 1 X PER DAY 1 PILL
     Dates: start: 20221201, end: 20230101
  2. RISPERIDONE [Suspect]
     Active Substance: RISPERIDONE
     Indication: Anhedonia
     Dosage: STRENGTH: 2 MG, 1 X PER DAY 2 PIECES
     Dates: start: 20220401, end: 20220530
  3. VENLAFAXINE [Concomitant]
     Active Substance: VENLAFAXINE HYDROCHLORIDE
  4. XANAX [Concomitant]
     Active Substance: ALPRAZOLAM
  5. LORAZEPAM [Concomitant]
     Active Substance: LORAZEPAM
  6. MIRTAZAPINE [Concomitant]
     Active Substance: MIRTAZAPINE
  7. PARNATE [Concomitant]
     Active Substance: TRANYLCYPROMINE SULFATE
  8. HYDROXYZINE [Concomitant]
     Active Substance: HYDROXYZINE HYDROCHLORIDE
  9. GABAPENTIN [Concomitant]
     Active Substance: GABAPENTIN

REACTIONS (4)
  - Tinnitus [Not Recovered/Not Resolved]
  - Sexual dysfunction [Recovering/Resolving]
  - Intrusive thoughts [Recovering/Resolving]
  - Anhedonia [Not Recovered/Not Resolved]
